FAERS Safety Report 16314505 (Version 6)
Quarter: 2019Q4

REPORT INFORMATION
  Report Type: Spontaneous
  Country: DE (occurrence: DE)
  Receive Date: 20190515
  Receipt Date: 20191031
  Transmission Date: 20200122
  Serious: Yes (Life-Threatening, Other)
  Sender: FDA-Public Use
  Company Number: DE-JNJFOC-20190509081

PATIENT
  Age: 75 Year
  Sex: Male

DRUGS (17)
  1. REMINYL [Suspect]
     Active Substance: GALANTAMINE
     Route: 065
     Dates: end: 20090205
  2. DIPIPERON [Suspect]
     Active Substance: PIPAMPERONE
     Indication: PRODUCT USED FOR UNKNOWN INDICATION
     Route: 065
     Dates: start: 20190219
  3. CIPRALEX [Interacting]
     Active Substance: ESCITALOPRAM OXALATE
     Indication: PRODUCT USED FOR UNKNOWN INDICATION
     Route: 065
     Dates: start: 20090224
  4. ESIDRIX [Interacting]
     Active Substance: HYDROCHLOROTHIAZIDE
     Indication: PRODUCT USED FOR UNKNOWN INDICATION
     Route: 065
     Dates: end: 20090226
  5. CIPRALEX [Interacting]
     Active Substance: ESCITALOPRAM OXALATE
     Route: 065
     Dates: start: 20090204, end: 20090209
  6. CAPTOHEXAL [Interacting]
     Active Substance: CAPTOPRIL
     Indication: PRODUCT USED FOR UNKNOWN INDICATION
     Route: 065
     Dates: start: 20090206
  7. TRAZODONE [Interacting]
     Active Substance: TRAZODONE HYDROCHLORIDE
     Indication: PRODUCT USED FOR UNKNOWN INDICATION
     Route: 065
  8. AMLODIPINE [Concomitant]
     Active Substance: AMLODIPINE BESYLATE
     Route: 065
     Dates: start: 20090205, end: 20090205
  9. REMINYL [Suspect]
     Active Substance: GALANTAMINE
     Indication: PRODUCT USED FOR UNKNOWN INDICATION
     Route: 065
     Dates: start: 20090206
  10. REMINYL [Suspect]
     Active Substance: GALANTAMINE
     Route: 065
     Dates: start: 20090219
  11. CIPRALEX [Interacting]
     Active Substance: ESCITALOPRAM OXALATE
     Route: 065
     Dates: start: 20090210, end: 20090217
  12. MARCUMAR [Concomitant]
     Active Substance: PHENPROCOUMON
     Indication: PRODUCT USED FOR UNKNOWN INDICATION
     Route: 065
  13. AMLODIPINE [Concomitant]
     Active Substance: AMLODIPINE BESYLATE
     Route: 065
     Dates: start: 20090206
  14. CIPRALEX [Interacting]
     Active Substance: ESCITALOPRAM OXALATE
     Route: 065
     Dates: start: 20090218, end: 20090223
  15. ESIDRIX [Interacting]
     Active Substance: HYDROCHLOROTHIAZIDE
     Route: 065
     Dates: start: 20090226
  16. CAPTOHEXAL [Interacting]
     Active Substance: CAPTOPRIL
     Route: 065
     Dates: end: 20090205
  17. CALCIUMCARBONATE [Concomitant]
     Indication: PRODUCT USED FOR UNKNOWN INDICATION
     Route: 065

REACTIONS (5)
  - Cardio-respiratory arrest [Recovered/Resolved with Sequelae]
  - Drug interaction [Recovered/Resolved with Sequelae]
  - Electrocardiogram QT prolonged [Recovered/Resolved with Sequelae]
  - Torsade de pointes [Recovered/Resolved with Sequelae]
  - Syncope [Recovered/Resolved with Sequelae]

NARRATIVE: CASE EVENT DATE: 20090223
